FAERS Safety Report 17744859 (Version 2)
Quarter: 2020Q2

REPORT INFORMATION
  Report Type: Spontaneous
  Country: US (occurrence: US)
  Receive Date: 20200505
  Receipt Date: 20200605
  Transmission Date: 20200714
  Serious: No
  Sender: FDA-Public Use
  Company Number: US-PFIZER INC-2020177150

PATIENT
  Age: 10 Year
  Sex: Male
  Weight: 34.02 kg

DRUGS (2)
  1. ETHOSUXIMIDE. [Concomitant]
     Active Substance: ETHOSUXIMIDE
     Indication: EPILEPSY
     Dosage: UNK(18 ML IN MORNING AND 19ML IN THE EVENING )
  2. CELONTIN [Suspect]
     Active Substance: METHSUXIMIDE
     Indication: EPILEPSY
     Dosage: 300 MG, 2X/DAY
     Dates: start: 201911, end: 20191203

REACTIONS (1)
  - Rash [Recovering/Resolving]

NARRATIVE: CASE EVENT DATE: 20191202
